FAERS Safety Report 6153309-8 (Version None)
Quarter: 2009Q2

REPORT INFORMATION
  Report Type: 
  Country: None (occurrence: None)
  Receive Date: 20090413
  Receipt Date: 20090406
  Transmission Date: 20091009
  Serious: Yes (Other)
  Sender: FDA-Public Use
  Company Number: IE-ROXANE LABORATORIES, INC.-2009-RO-00343RO

PATIENT
  Age: 60 Year
  Sex: Male

DRUGS (12)
  1. MORPHINE [Suspect]
     Indication: ANALGESIA
     Route: 037
  2. MORPHINE [Suspect]
     Indication: PAIN
     Dosage: 2MG
     Route: 042
  3. ONDANSETRON [Suspect]
     Dosage: 8MG
     Route: 042
  4. FENTANYL [Suspect]
     Indication: GENERAL ANAESTHESIA
     Dosage: 100MCG
     Route: 042
  5. PROPOFOL [Suspect]
     Indication: GENERAL ANAESTHESIA
     Dosage: 100MG
     Route: 042
  6. ROCURONIUM BROMIDE [Suspect]
     Indication: GENERAL ANAESTHESIA
     Dosage: 50MG
     Route: 042
  7. REMIFENTANIL [Suspect]
     Indication: ANALGESIA
  8. PHENYLEPHRINE [Suspect]
     Indication: PROCEDURAL HYPOTENSION
  9. PARACETAMOL [Suspect]
     Dosage: 1G
  10. TRAMADOL HCL [Suspect]
     Dosage: 100MG
  11. SEVOFLURANE [Suspect]
     Indication: MAINTENANCE OF ANAESTHESIA
  12. OXYGEN [Suspect]
     Indication: MAINTENANCE OF ANAESTHESIA

REACTIONS (2)
  - PROCEDURAL HYPOTENSION [None]
  - RESPIRATORY ACIDOSIS [None]
